FAERS Safety Report 8337935-3 (Version None)
Quarter: 2012Q2

REPORT INFORMATION
  Report Type: 
  Country: None (occurrence: None)
  Receive Date: 20120504
  Receipt Date: 20120430
  Transmission Date: 20120825
  Serious: Yes (Other)
  Sender: FDA-Public Use
  Company Number: US-JNJFOC-20120403506

PATIENT
  Sex: Male
  Weight: 79.38 kg

DRUGS (5)
  1. DURAGESIC-100 [Suspect]
     Route: 062
     Dates: start: 20090101
  2. DURAGESIC-100 [Suspect]
     Route: 062
     Dates: start: 20120402, end: 20120402
  3. DURAGESIC-100 [Suspect]
     Indication: BACK PAIN
     Route: 062
     Dates: start: 20120403
  4. OXYCODONE HCL [Concomitant]
     Indication: PAIN
     Route: 048
  5. LYRICA [Concomitant]
     Indication: BACK PAIN
     Route: 048
     Dates: start: 19990101

REACTIONS (12)
  - HYPERHIDROSIS [None]
  - HEART RATE INCREASED [None]
  - EYE DISORDER [None]
  - TINNITUS [None]
  - OVERDOSE [None]
  - PRODUCT ODOUR ABNORMAL [None]
  - RESPIRATORY RATE DECREASED [None]
  - DRUG EFFECT INCREASED [None]
  - DEVICE LEAKAGE [None]
  - HEADACHE [None]
  - DRUG ADMINISTRATION ERROR [None]
  - PRODUCT QUALITY ISSUE [None]
